FAERS Safety Report 19546566 (Version 1)
Quarter: 2021Q3

REPORT INFORMATION
  Report Type: Spontaneous
  Country: ES (occurrence: ES)
  Receive Date: 20210714
  Receipt Date: 20210714
  Transmission Date: 20211014
  Serious: Yes (Other)
  Sender: FDA-Public Use
  Company Number: ES-TEVA-2021-ES-1931685

PATIENT
  Age: 61 Year
  Sex: Female

DRUGS (8)
  1. ADOFEN 20 MG COMPRIMIDOS DISPERSABLES, 56 COMPRIMIDOS [Concomitant]
  2. DROGLICAN 200 MG/250 MG CAPSULAS DURAS [Concomitant]
  3. EUTIROX 88 MICROGRAMOS COMPRIMIDOS [Concomitant]
  4. ORFIDAL 1 MG COMPRIMIDOS, 50 COMPRIMIDOS [Concomitant]
     Active Substance: LORAZEPAM
  5. FENOFIBRATO 200 MG 30 CAPSULAS [Suspect]
     Active Substance: FENOFIBRATE
     Indication: HYPERTRIGLYCERIDAEMIA
     Dosage: 200MG
     Route: 048
     Dates: start: 20210618
  6. YANTIL RETARD 100 MG COMPRIMIDOS DE LIBERACION PROLONGADA [Concomitant]
  7. NEXIUM MUPS 40 MG COMPRIMIDOS GASTRORRESISTENTES [Concomitant]
  8. KETAZOLAM (3254A) [Concomitant]

REACTIONS (1)
  - Palatal oedema [Unknown]

NARRATIVE: CASE EVENT DATE: 20210621
